FAERS Safety Report 8481952-X (Version None)
Quarter: 2012Q3

REPORT INFORMATION
  Report Type: 
  Country: None (occurrence: None)
  Receive Date: 20120702
  Receipt Date: 20120629
  Transmission Date: 20120928
  Serious: Yes (Other)
  Sender: FDA-Public Use
  Company Number: US-PFIZER INC-2012149198

PATIENT
  Sex: Female
  Weight: 99.61 kg

DRUGS (17)
  1. FLOVENT [Concomitant]
     Dosage: 220 MCG/ACT, (INHALE 2 PUFFS INTO THE LUNGS DAILY)
  2. ZOCOR [Concomitant]
     Dosage: 40 MG, 1X/DAY
     Route: 048
  3. GLUCOSAMINE CHONDROITIN [Concomitant]
     Dosage: 1 DF, 2X/DAY
     Route: 048
  4. PLAQUENIL [Concomitant]
     Dosage: 200 MG, 2X/DAY
     Route: 048
  5. DELTASONE [Concomitant]
     Dosage: 5 MG (TAKES 1 1/2 DAILY)
     Route: 048
  6. VITAMIN A AND D [Concomitant]
     Dosage: UNK
     Route: 061
  7. ESTRACE [Concomitant]
     Dosage: 1 MG, 1X/DAY
     Route: 048
  8. LOVAZA [Concomitant]
     Dosage: 2 G, 2X/DAY
     Route: 048
  9. HUMIRA [Concomitant]
     Dosage: 40 MG/0.8ML, (INJECT 40 MG INTO THE SKIN ONCE)
  10. HALCION [Concomitant]
     Dosage: 0.25 MG, AS NEEDED NIGHTLY
     Route: 048
  11. VITAMIN D [Concomitant]
     Dosage: 2000 IU, UNK
     Route: 048
  12. PROTONIX [Suspect]
     Dosage: 40 MG, 1X/DAY
     Route: 048
  13. PLAVIX [Concomitant]
     Dosage: 75 MG, 1X/DAY
     Route: 048
  14. TOBREX [Concomitant]
     Dosage: 0.3 %, 3X/DAY
     Route: 047
  15. ACETYLSALICYLIC ACID [Concomitant]
     Dosage: 81 MG, DAILY
     Route: 048
  16. MULTIPLE VITAMINS [Concomitant]
     Dosage: 1 DF, 1X/DAY
     Route: 048
  17. CORGARD [Concomitant]
     Dosage: 60 MG, 1X/DAY
     Route: 048

REACTIONS (6)
  - RHEUMATOID ARTHRITIS [None]
  - ARTERIOSCLEROSIS CORONARY ARTERY [None]
  - HYPERLIPIDAEMIA [None]
  - ESSENTIAL HYPERTENSION [None]
  - SLEEP APNOEA SYNDROME [None]
  - OBESITY [None]
